FAERS Safety Report 9645545 (Version 1)
Quarter: 2013Q4

REPORT INFORMATION
  Report Type: Spontaneous
  Country: US (occurrence: None)
  Receive Date: 20131023
  Receipt Date: 20131023
  Transmission Date: 20140711
  Serious: Yes (Other)
  Sender: FDA-Public Use
  Company Number: 1949092

PATIENT
  Age: 26 Year
  Sex: Male
  Weight: 90.91 kg

DRUGS (2)
  1. SODIUM CHLORIDE [Suspect]
     Indication: THERAPEUTIC PROCEDURE
     Dates: start: 20130723
  2. STERILE WATER [Suspect]
     Indication: THERAPEUTIC PROCEDURE
     Dates: start: 20130723

REACTIONS (4)
  - Staphylococcal infection [None]
  - Burkholderia infection [None]
  - Product contamination [None]
  - Product quality issue [None]
